FAERS Safety Report 21831607 (Version 1)
Quarter: 2023Q1

REPORT INFORMATION
  Report Type: Spontaneous
  Country: DE (occurrence: DE)
  Receive Date: 20230106
  Receipt Date: 20230106
  Transmission Date: 20230417
  Serious: Yes (Death, Other)
  Sender: FDA-Public Use
  Company Number: DE-PFIZER INC-PV202300001795

PATIENT

DRUGS (3)
  1. PALBOCICLIB [Suspect]
     Active Substance: PALBOCICLIB
     Indication: Tongue neoplasm malignant stage unspecified
     Dosage: UNK
  2. NIVOLUMAB [Suspect]
     Active Substance: NIVOLUMAB
     Indication: Tongue neoplasm malignant stage unspecified
  3. IPILIMUMAB [Suspect]
     Active Substance: IPILIMUMAB
     Indication: Tongue neoplasm malignant stage unspecified

REACTIONS (2)
  - Off label use [Fatal]
  - Death [Fatal]
